FAERS Safety Report 7973495-4 (Version None)
Quarter: 2011Q4

REPORT INFORMATION
  Report Type: 
  Country: None (occurrence: None)
  Receive Date: 20111213
  Receipt Date: 20111208
  Transmission Date: 20120403
  Serious: Yes (Hospitalization)
  Sender: FDA-Public Use
  Company Number: US-TEVA-305883USA

PATIENT
  Sex: Female

DRUGS (3)
  1. CETIRIZINE HCL [Suspect]
     Route: 048
  2. COPAXONE [Suspect]
     Indication: MULTIPLE SCLEROSIS
     Dosage: 20 MILLIGRAM;
     Route: 058
  3. ORAL CONTRACEPTIVE NOS [Suspect]
     Route: 048

REACTIONS (1)
  - HEPATIC FAILURE [None]
